FAERS Safety Report 12963893 (Version 1)
Quarter: 2016Q4

REPORT INFORMATION
  Report Type: Spontaneous
  Country: US (occurrence: US)
  Receive Date: 20161122
  Receipt Date: 20161122
  Transmission Date: 20170207
  Serious: Yes (Hospitalization)
  Sender: FDA-Public Use
  Company Number: US-GLAXOSMITHKLINE-US2016168690

PATIENT
  Age: 61 Year
  Sex: Female

DRUGS (1)
  1. VENTOLIN HFA [Suspect]
     Active Substance: ALBUTEROL SULFATE
     Indication: DYSPNOEA
     Dosage: UNK UNK, BID
     Route: 055
     Dates: start: 201602

REACTIONS (6)
  - Hypertension [Recovered/Resolved]
  - Hypotension [Recovered/Resolved]
  - Dizziness [Recovered/Resolved]
  - Device use error [Unknown]
  - Dyspnoea [Recovered/Resolved]
  - Product cleaning inadequate [Unknown]

NARRATIVE: CASE EVENT DATE: 201604
